FAERS Safety Report 10267371 (Version 2)
Quarter: 2014Q2

REPORT INFORMATION
  Report Type: Report from Study
  Country: GR (occurrence: GR)
  Receive Date: 20140630
  Receipt Date: 20140630
  Transmission Date: 20141212
  Serious: No
  Sender: FDA-Public Use
  Company Number: PHHY2014GR035877

PATIENT
  Age: 55 Year
  Sex: Female

DRUGS (2)
  1. AMN107 [Suspect]
     Indication: CHRONIC MYELOID LEUKAEMIA
     Dosage: 150 MG, BID
     Route: 048
     Dates: start: 20120727, end: 20140627
  2. THYROHORMONE [Concomitant]
     Dates: end: 20140530

REACTIONS (1)
  - Thyroglobulin increased [Recovered/Resolved]
